FAERS Safety Report 7824087-9 (Version None)
Quarter: 2011Q4

REPORT INFORMATION
  Report Type: 
  Country: None (occurrence: None)
  Receive Date: 20111019
  Receipt Date: 20111011
  Transmission Date: 20120403
  Serious: Yes (Other)
  Sender: FDA-Public Use
  Company Number: PHEH2011US01169

PATIENT
  Age: 78 Year
  Sex: Female
  Weight: 49.887 kg

DRUGS (1)
  1. TOBI [Suspect]
     Dosage: 300 MG, BID, 28 DAYS ON 28 DAYS OFF
     Dates: start: 20110629, end: 20111001

REACTIONS (5)
  - COUGH [None]
  - SPUTUM DISCOLOURED [None]
  - PULMONARY OEDEMA [None]
  - DYSPNOEA [None]
  - WHEEZING [None]
